FAERS Safety Report 21772355 (Version 2)
Quarter: 2023Q1

REPORT INFORMATION
  Report Type: Spontaneous
  Country: CN (occurrence: CN)
  Receive Date: 20221223
  Receipt Date: 20230123
  Transmission Date: 20230417
  Serious: Yes (Death, Hospitalization, Other)
  Sender: FDA-Public Use
  Company Number: CN-SA-SAC20221222001603

PATIENT
  Age: 17 Year
  Sex: Female
  Weight: 26.5 kg

DRUGS (1)
  1. CEREZYME [Suspect]
     Active Substance: IMIGLUCERASE
     Indication: Gaucher^s disease
     Dosage: 30 IU/KG
     Route: 042
     Dates: start: 202104, end: 20220428

REACTIONS (3)
  - Ascites [Fatal]
  - Pleural effusion [Fatal]
  - Organ failure [Fatal]
